FAERS Safety Report 5843900-8 (Version None)
Quarter: 2008Q3

REPORT INFORMATION
  Report Type: 
  Country: None (occurrence: None)
  Receive Date: 20080813
  Receipt Date: 20080804
  Transmission Date: 20090109
  Serious: Yes (Hospitalization)
  Sender: FDA-Public Use
  Company Number: BE-AMGEN-US299429

PATIENT
  Age: 79 Year
  Sex: Male
  Weight: 62 kg

DRUGS (18)
  1. ENBREL [Suspect]
     Indication: RHEUMATOID ARTHRITIS
     Dosage: 50 MG/WEEK
     Route: 058
     Dates: start: 20061101, end: 20080611
  2. DOLZAM [Concomitant]
     Dosage: 150 MG
     Route: 048
  3. ACETAMINOPHEN [Concomitant]
     Route: 048
  4. PREDNISOLONE [Concomitant]
     Route: 048
  5. BENERVA [Concomitant]
     Route: 048
  6. PRAVASTATIN [Concomitant]
     Route: 048
  7. MOBIC [Concomitant]
     Route: 048
  8. CALCICHEW-D3 [Concomitant]
     Dosage: 1/DAY
     Route: 048
  9. ASPIRIN [Concomitant]
     Route: 048
  10. DOMINAL [Concomitant]
     Dosage: 40 MG
     Route: 048
  11. SEROXAT [Concomitant]
     Route: 048
  12. CALCIUM CARBONATE [Concomitant]
     Route: 048
  13. SUPRADYN [Concomitant]
     Dosage: 1/DAY
     Route: 048
  14. ESOMEPRAZOLE [Concomitant]
     Route: 048
  15. OMEPRAZOLE [Concomitant]
     Route: 048
  16. LEDERTREXATE [Concomitant]
     Dosage: 8 TABLETS ONCE WEEKLY
     Route: 048
  17. FOLIC ACID [Concomitant]
     Dosage: 2X/WEEK
     Route: 048
  18. DILTIAZEM HCL [Concomitant]
     Dosage: 200 MG
     Route: 048

REACTIONS (2)
  - GASTRIC CANCER [None]
  - PERITONITIS [None]
